FAERS Safety Report 7699376-1 (Version None)
Quarter: 2011Q3

REPORT INFORMATION
  Report Type: 
  Country: None (occurrence: None)
  Receive Date: 20110819
  Receipt Date: 20110812
  Transmission Date: 20111222
  Serious: Yes (Hospitalization, Other)
  Sender: FDA-Public Use
  Company Number: US-BAYER-2011-023480

PATIENT
  Age: 30 Year
  Sex: Female
  Weight: 68.027 kg

DRUGS (5)
  1. TOPAMAX [Concomitant]
  2. YAZ [Suspect]
     Indication: PRODUCT USED FOR UNKNOWN INDICATION
     Dosage: UNK
     Dates: start: 20070101, end: 20090701
  3. MAXIFED [Concomitant]
  4. PROVENTIL [Concomitant]
  5. MAXALT [Concomitant]

REACTIONS (2)
  - INJURY [None]
  - PULMONARY EMBOLISM [None]
